FAERS Safety Report 4298423-7 (Version None)
Quarter: 2004Q1

REPORT INFORMATION
  Report Type: 
  Country: None (occurrence: None)
  Receive Date: 20040218
  Receipt Date: 20030715
  Transmission Date: 20041129
  Serious: Yes (Other)
  Sender: FDA-Public Use
  Company Number: US-BRISTOL-MYERS SQUIBB COMPANY-12326831

PATIENT
  Age: 50 Year
  Sex: Female

DRUGS (8)
  1. STADOL [Suspect]
     Indication: MIGRAINE
     Dosage: DURATION OF THERAPY:  A LONG PERIOD OF TIME.
     Route: 045
  2. PROZAC [Concomitant]
  3. DARVOCET [Concomitant]
     Dosage: # OF DOSAGES:  EVERY 4 TO 6 HOURS AS NEEEDED.
  4. SELDANE [Concomitant]
  5. MIDRIN [Concomitant]
     Dosage: NUMBER OF DOSAGES:  EVERY HOUR TO A MAXIMUM OF FIVE.
  6. NASALCROM [Concomitant]
  7. CEPHALEXIN [Concomitant]
  8. PROVENTIL [Concomitant]

REACTIONS (1)
  - DEPENDENCE [None]
